FAERS Safety Report 4441248-X (Version None)
Quarter: 2004Q3

REPORT INFORMATION
  Report Type: 
  Country: None (occurrence: None)
  Receive Date: 20040728
  Receipt Date: 20040223
  Transmission Date: 20050211
  Serious: No
  Sender: FDA-Public Use
  Company Number: USA040260083

PATIENT
  Age: 42 Year
  Sex: Female

DRUGS (3)
  1. STRATTERA [Suspect]
     Dosage: 40 MG/1 IN THE MORNING
     Dates: start: 20040220
  2. WELLBUTRIN [Concomitant]
  3. ADDERALL 10 [Concomitant]

REACTIONS (3)
  - NAUSEA [None]
  - PARAESTHESIA [None]
  - SOMNOLENCE [None]
